FAERS Safety Report 11536715 (Version 1)
Quarter: 2015Q3

REPORT INFORMATION
  Report Type: Spontaneous
  Country: None (occurrence: None)
  Receive Date: 20150921
  Receipt Date: 20150921
  Transmission Date: 20151125
  Serious: Yes (Life-Threatening)
  Sender: FDA-Public Use
  Company Number: None

PATIENT
  Age: 90 Year
  Sex: Female
  Weight: 56.7 kg

DRUGS (1)
  1. CEFTRIAXONE 1 G HOSPIRA [Suspect]
     Active Substance: CEFTRIAXONE
     Indication: URINARY TRACT INFECTION
     Route: 042
     Dates: start: 20150919, end: 20150919

REACTIONS (4)
  - Dyspnoea [None]
  - Feeling hot [None]
  - Cardio-respiratory arrest [None]
  - Loss of consciousness [None]

NARRATIVE: CASE EVENT DATE: 20150919
